FAERS Safety Report 11428742 (Version 1)
Quarter: 2015Q3

REPORT INFORMATION
  Report Type: Spontaneous
  Country: US (occurrence: None)
  Receive Date: 20150827
  Receipt Date: 20150827
  Transmission Date: 20151125
  Serious: No
  Sender: FDA-Public Use
  Company Number: None

PATIENT
  Age: 36 Year
  Sex: Female
  Weight: 61.24 kg

DRUGS (4)
  1. NOVOLOG [Concomitant]
     Active Substance: INSULIN ASPART
     Indication: HEADACHE
     Dosage: 1 CAPLET
  2. VITAMIN D [Concomitant]
     Active Substance: CHOLECALCIFEROL
  3. NORTHO OVUM [Concomitant]
  4. ACETAMINOPHEN 500MG QUALITY PLUS [Suspect]
     Active Substance: ACETAMINOPHEN
     Indication: HEADACHE
     Dosage: CAPLET
     Route: 048
     Dates: start: 20150820, end: 20150826

REACTIONS (1)
  - Throat irritation [None]

NARRATIVE: CASE EVENT DATE: 20150826
